FAERS Safety Report 8027982-3 (Version None)
Quarter: 2012Q1

REPORT INFORMATION
  Report Type: 
  Country: None (occurrence: None)
  Receive Date: 20120106
  Receipt Date: 20111228
  Transmission Date: 20120608
  Serious: Yes (Other)
  Sender: FDA-Public Use
  Company Number: JP-EISAI INC-E7777-00002-CLI-JP

PATIENT
  Sex: Male

DRUGS (1)
  1. ONTAK [Suspect]
     Indication: INTESTINAL T-CELL LYMPHOMA
     Route: 041
     Dates: start: 20111212, end: 20111216

REACTIONS (1)
  - INTERSTITIAL LUNG DISEASE [None]
